FAERS Safety Report 8602006 (Version 2)
Quarter: 2014Q1

REPORT INFORMATION
  Report Type: Spontaneous
  Country: GB (occurrence: GB)
  Receive Date: 20120606
  Receipt Date: 20140312
  Transmission Date: 20141002
  Serious: Yes (Death)
  Sender: FDA-Public Use
  Company Number: GB-TEVA-339783ISR

PATIENT
  Age: 40 Year
  Sex: Male
  Weight: 104 kg

DRUGS (4)
  1. CLARITHROMYCIN [Suspect]
     Indication: INFECTION
     Route: 048
     Dates: start: 20111028, end: 20111030
  2. METHADONE [Interacting]
     Indication: PAIN
     Route: 048
     Dates: start: 20111025, end: 20111030
  3. ORAMORPH [Concomitant]
     Indication: PAIN
     Route: 048
     Dates: end: 20111027
  4. HUMIRA [Concomitant]
     Indication: CROHN^S DISEASE
     Route: 058
     Dates: start: 20111005, end: 20111019

REACTIONS (2)
  - Death [Fatal]
  - Inhibitory drug interaction [Unknown]
